FAERS Safety Report 25400637 (Version 1)
Quarter: 2025Q2

REPORT INFORMATION
  Report Type: Spontaneous
  Country: US (occurrence: None)
  Receive Date: 20250604
  Receipt Date: 20250604
  Transmission Date: 20250717
  Serious: Yes (Hospitalization)
  Sender: FDA-CTU
  Company Number: None

PATIENT
  Sex: Female

DRUGS (11)
  1. DALFAMPRIDINE [Suspect]
     Active Substance: DALFAMPRIDINE
     Indication: Multiple sclerosis
     Dosage: FREQUENCY : TWICE A DAY;?
     Route: 048
     Dates: start: 20181017
  2. AMPYRA [Concomitant]
     Active Substance: DALFAMPRIDINE
  3. BIOTIN [Concomitant]
     Active Substance: BIOTIN
  4. DIAZEPAM [Concomitant]
     Active Substance: DIAZEPAM
  5. FLONASE ALGY SPR [Concomitant]
  6. GABAPENTI N [Concomitant]
  7. LEVOTHYROXINE [Concomitant]
     Active Substance: LEVOTHYROXINE
  8. LIPITOR [Concomitant]
     Active Substance: ATORVASTATIN CALCIUM
  9. LISINOPRIL [Concomitant]
     Active Substance: LISINOPRIL
  10. MULTI VITAMN TAB MINERALS [Concomitant]
  11. OCREVUS [Concomitant]
     Active Substance: OCRELIZUMAB

REACTIONS (3)
  - COVID-19 [None]
  - Pneumonia [None]
  - Therapy interrupted [None]
